FAERS Safety Report 7792156-8 (Version None)
Quarter: 2011Q4

REPORT INFORMATION
  Report Type: 
  Country: None (occurrence: None)
  Receive Date: 20111003
  Receipt Date: 20111003
  Transmission Date: 20120403
  Serious: Yes (Life-Threatening, Hospitalization, Other)
  Sender: FDA-Public Use
  Company Number: None

PATIENT
  Age: 10 Year
  Sex: Male
  Weight: 60.781 kg

DRUGS (2)
  1. RAMIPRIL [Concomitant]
  2. TACROLIMUS [Suspect]
     Indication: NEPHROTIC SYNDROME
     Dosage: 2 CAPSULES
     Route: 048
     Dates: start: 20090601, end: 20100601

REACTIONS (5)
  - NEPHROTIC SYNDROME [None]
  - CEREBROVASCULAR ACCIDENT [None]
  - DRUG INTERACTION [None]
  - DISEASE RECURRENCE [None]
  - ABNORMAL CLOTTING FACTOR [None]
